FAERS Safety Report 6396342-3 (Version None)
Quarter: 2009Q4

REPORT INFORMATION
  Report Type: 
  Country: None (occurrence: None)
  Receive Date: 20091012
  Receipt Date: 20090928
  Transmission Date: 20100525
  Serious: Yes (Other)
  Sender: FDA-Public Use
  Company Number: PHHY2009GB42022

PATIENT
  Age: 49 Year
  Sex: Male

DRUGS (5)
  1. OCTREOTIDE ACETATE [Suspect]
     Dosage: 150 UG, UNK
     Route: 058
     Dates: start: 20020818, end: 20090829
  2. CYCLIZINE [Concomitant]
     Indication: NAUSEA
     Dosage: 50 MG, UNK
     Route: 030
     Dates: start: 20090823, end: 20090828
  3. FENTANYL [Concomitant]
     Indication: ANALGESIC THERAPY
     Dosage: 75 UG, UNK
     Route: 062
     Dates: start: 20090818
  4. LANSOPRAZOLE [Concomitant]
     Indication: GASTROOESOPHAGEAL REFLUX DISEASE
     Dosage: 30 MG, UNK
     Route: 048
     Dates: start: 20090824
  5. ACETAMINOPHEN [Concomitant]
     Indication: ANALGESIC THERAPY
     Dosage: 1 G, UNK
     Route: 042
     Dates: start: 20090729

REACTIONS (8)
  - COLD SWEAT [None]
  - DUODENAL OPERATION [None]
  - HYPERTENSION [None]
  - LAPAROTOMY [None]
  - NAUSEA [None]
  - RESPIRATORY RATE INCREASED [None]
  - SMALL INTESTINAL RESECTION [None]
  - TACHYCARDIA [None]
